FAERS Safety Report 4384513-7 (Version None)
Quarter: 2004Q2

REPORT INFORMATION
  Report Type: 
  Country: None (occurrence: None)
  Receive Date: 20040610
  Receipt Date: 20040312
  Transmission Date: 20050107
  Serious: No
  Sender: FDA-Public Use
  Company Number: US-JNJFOC-20040105284

PATIENT
  Age: 72 Year
  Sex: Male
  Weight: 96.6162 kg

DRUGS (1)
  1. NATRECOR [Suspect]
     Indication: CARDIAC FAILURE CONGESTIVE
     Dosage: 2 UG/KG, INTRAVENOUS; 0.01 UG/KG/MIN., INTRAVENOUS
     Route: 042

REACTIONS (2)
  - PHOTOSENSITIVITY REACTION [None]
  - RASH PRURITIC [None]
